FAERS Safety Report 8362753 (Version 7)
Quarter: 2013Q3

REPORT INFORMATION
  Report Type: Spontaneous
  Country: SE (occurrence: SE)
  Receive Date: 20120130
  Receipt Date: 20130717
  Transmission Date: 20140515
  Serious: Yes (Death, Life-Threatening, Hospitalization, Other)
  Sender: FDA-Public Use
  Company Number: SE-ELI_LILLY_AND_COMPANY-SE201201006466

PATIENT
  Age: 61 Year
  Sex: Female

DRUGS (8)
  1. ALIMTA [Suspect]
     Indication: LUNG CARCINOMA CELL TYPE UNSPECIFIED STAGE III
     Dosage: 890 MG, UNKNOWN
     Dates: start: 20111227
  2. CISPLATIN [Concomitant]
     Indication: LUNG CARCINOMA CELL TYPE UNSPECIFIED STAGE III
     Dosage: 130 MG, UNKNOWN
     Dates: start: 20111227
  3. FEMANEST [Concomitant]
     Indication: OESTROGEN THERAPY
     Dosage: 2 MG, QD
     Route: 048
     Dates: start: 2010, end: 201201
  4. PREDNISOLON [Concomitant]
     Indication: ANTIINFLAMMATORY THERAPY
     Dosage: 5 MG, QID
     Route: 048
     Dates: start: 20111202, end: 20121226
  5. BETAPRED [Concomitant]
     Indication: STEROID THERAPY
     Dosage: 1 MG, QID
     Route: 048
     Dates: start: 20111226, end: 20111229
  6. PREDNISOLON [Concomitant]
     Indication: STEROID THERAPY
     Dosage: 5 MG, QID
     Route: 048
     Dates: start: 20111229, end: 201201
  7. FOLACIN                            /00024201/ [Concomitant]
     Indication: ADJUVANT THERAPY
     Dosage: 5 MG, QD
     Route: 048
     Dates: start: 20111220
  8. CYANOCOBALAMIN [Concomitant]
     Indication: ADJUVANT THERAPY
     Dosage: UNK
     Dates: start: 20111220

REACTIONS (7)
  - Malignant neoplasm progression [Fatal]
  - Multi-organ failure [Unknown]
  - Disseminated intravascular coagulation [Unknown]
  - Bacterial sepsis [Unknown]
  - Extremity necrosis [Unknown]
  - Acute respiratory distress syndrome [Unknown]
  - Pulmonary oedema [Unknown]
